FAERS Safety Report 7362335-2 (Version None)
Quarter: 2011Q1

REPORT INFORMATION
  Report Type: 
  Country: None (occurrence: None)
  Receive Date: 20110309
  Receipt Date: 20110221
  Transmission Date: 20110831
  Serious: Yes (Hospitalization)
  Sender: FDA-Public Use
  Company Number: 2011MA001617

PATIENT
  Age: 42 Year
  Sex: Female

DRUGS (1)
  1. TRIAMCINOLONE ACETONIDE [Suspect]
     Indication: TENOSYNOVITIS STENOSANS
     Dosage: 20 MG;

REACTIONS (5)
  - CONDITION AGGRAVATED [None]
  - JOINT CONTRACTURE [None]
  - FATIGUE [None]
  - MUSCLE SPASMS [None]
  - TENDON RUPTURE [None]
